FAERS Safety Report 7906326-9 (Version None)
Quarter: 2011Q4

REPORT INFORMATION
  Report Type: 
  Country: None (occurrence: None)
  Receive Date: 20111110
  Receipt Date: 20111031
  Transmission Date: 20120403
  Serious: Yes (Hospitalization)
  Sender: FDA-Public Use
  Company Number: US-BAYER-2011-006934

PATIENT
  Age: 46 Year
  Sex: Female
  Weight: 86.168 kg

DRUGS (12)
  1. WELLBUTRIN [Concomitant]
  2. WARFARIN SODIUM [Concomitant]
  3. YAZ [Suspect]
     Dosage: UNK
     Dates: start: 20090207, end: 20090825
  4. YAZ [Suspect]
     Dosage: UNK
     Dates: start: 20091024, end: 20091230
  5. YAZ [Suspect]
     Indication: MENSTRUATION IRREGULAR
     Dosage: UNK
     Dates: start: 20070312, end: 20080930
  6. YASMIN [Suspect]
     Dosage: UNK
  7. BUPROPION HYDROCHLORIDE [Concomitant]
  8. ZOLPIDEM [Concomitant]
  9. ASPIRIN [Concomitant]
  10. DROSPIRENONE AND ETHINYL ESTRADIOL [Suspect]
     Indication: MENSTRUATION IRREGULAR
     Dosage: UNK
     Dates: start: 20090928
  11. AUGMENTIN '125' [Concomitant]
  12. BUTALBITAL [Concomitant]

REACTIONS (1)
  - INTRACRANIAL VENOUS SINUS THROMBOSIS [None]
